FAERS Safety Report 7680107-6 (Version None)
Quarter: 2011Q3

REPORT INFORMATION
  Report Type: 
  Country: None (occurrence: None)
  Receive Date: 20110812
  Receipt Date: 20110727
  Transmission Date: 20111222
  Serious: Yes (Other)
  Sender: FDA-Public Use
  Company Number: FR-PFIZER INC-2011184811

PATIENT
  Age: 8 Month
  Sex: Female

DRUGS (5)
  1. VANTIN [Suspect]
     Indication: GASTROENTERITIS
  2. TIORFAN [Concomitant]
     Dosage: UNK
  3. ULTRA-LEVURE [Concomitant]
     Dosage: UNK
  4. VANTIN [Suspect]
     Indication: URINARY TRACT INFECTION
     Dosage: UNK
     Route: 065
     Dates: start: 20110725
  5. OROKEN [Suspect]
     Dosage: UNK

REACTIONS (4)
  - BODY TEMPERATURE DECREASED [None]
  - DIARRHOEA [None]
  - WRONG DRUG ADMINISTERED [None]
  - VOMITING [None]
